FAERS Safety Report 17276873 (Version 1)
Quarter: 2020Q1

REPORT INFORMATION
  Report Type: Spontaneous
  Country: US (occurrence: US)
  Receive Date: 20200115
  Receipt Date: 20200115
  Transmission Date: 20200409
  Serious: No
  Sender: FDA-Public Use
  Company Number: None

PATIENT
  Age: 37 Year
  Sex: Female
  Weight: 67.5 kg

DRUGS (1)
  1. DOXYCYCLINE HYCLATE. [Suspect]
     Active Substance: DOXYCYCLINE HYCLATE
     Indication: SINUSITIS
     Dosage: ?          QUANTITY:1 TABLET(S);?
     Dates: start: 20200107, end: 20200111

REACTIONS (6)
  - Paraesthesia [None]
  - Skin tightness [None]
  - Malaise [None]
  - Head discomfort [None]
  - Abdominal pain upper [None]
  - Feeling hot [None]

NARRATIVE: CASE EVENT DATE: 20200114
